FAERS Safety Report 4847302-2 (Version None)
Quarter: 2005Q4

REPORT INFORMATION
  Report Type: 
  Country: None (occurrence: None)
  Receive Date: 20051205
  Receipt Date: 20051122
  Transmission Date: 20060501
  Serious: Yes (Other)
  Sender: FDA-Public Use
  Company Number: 2005BH002975

PATIENT
  Age: 23 Year
  Sex: Female

DRUGS (1)
  1. LACTATED RINGER'S [Suspect]
     Dosage: 1000 ML; ONCE; IV
     Route: 042
     Dates: start: 20041004, end: 20041004

REACTIONS (3)
  - INFUSION RELATED REACTION [None]
  - RASH [None]
  - URTICARIA [None]
